FAERS Safety Report 11877545 (Version 4)
Quarter: 2016Q2

REPORT INFORMATION
  Report Type: Report from Study
  Country: DE (occurrence: DE)
  Receive Date: 20151230
  Receipt Date: 20160511
  Transmission Date: 20160815
  Serious: Yes (Hospitalization, Other)
  Sender: FDA-Public Use
  Company Number: PHHY2015DE134208

PATIENT
  Age: 34 Year
  Sex: Male
  Weight: 62 kg

DRUGS (2)
  1. GILENYA [Suspect]
     Active Substance: FINGOLIMOD HYDROCHLORIDE
     Indication: MULTIPLE SCLEROSIS
     Dosage: 0.5 MG, QD
     Route: 048
     Dates: start: 20141111, end: 20151224
  2. GILENYA [Suspect]
     Active Substance: FINGOLIMOD HYDROCHLORIDE
     Dosage: UNK
     Route: 048
     Dates: start: 20160103

REACTIONS (13)
  - Weight decreased [Not Recovered/Not Resolved]
  - Nervous system disorder [Not Recovered/Not Resolved]
  - Gait disturbance [Unknown]
  - Concomitant disease aggravated [Not Recovered/Not Resolved]
  - Diarrhoea [Not Recovered/Not Resolved]
  - Lymphocyte count decreased [Unknown]
  - Gamma-glutamyltransferase increased [Unknown]
  - Multiple sclerosis relapse [Unknown]
  - Infection [Unknown]
  - Alanine aminotransferase increased [Recovered/Resolved]
  - Gastric ulcer [Recovered/Resolved]
  - Iridocyclitis [Unknown]
  - White blood cell count increased [Recovered/Resolved]

NARRATIVE: CASE EVENT DATE: 20141116
